FAERS Safety Report 24347202 (Version 1)
Quarter: 2024Q3

REPORT INFORMATION
  Report Type: Spontaneous
  Country: US (occurrence: US)
  Receive Date: 20240921
  Receipt Date: 20240921
  Transmission Date: 20241017
  Serious: Yes (Other)
  Sender: AMGEN
  Company Number: US-AMGEN-USASP2024183569

PATIENT
  Sex: Female

DRUGS (3)
  1. EVENITY [Suspect]
     Active Substance: ROMOSOZUMAB-AQQG
     Indication: Product used for unknown indication
     Dosage: UNK
     Route: 065
  2. EVENITY [Suspect]
     Active Substance: ROMOSOZUMAB-AQQG
  3. PROLIA [Suspect]
     Active Substance: DENOSUMAB
     Indication: Product used for unknown indication
     Dosage: UNK UNK, Q6MO
     Route: 065
     Dates: start: 20240619

REACTIONS (8)
  - Spinal fracture [Unknown]
  - Injection site swelling [Unknown]
  - Swelling face [Not Recovered/Not Resolved]
  - Erythema [Not Recovered/Not Resolved]
  - Facial pain [Not Recovered/Not Resolved]
  - Tooth disorder [Not Recovered/Not Resolved]
  - Toothache [Not Recovered/Not Resolved]
  - Oral pain [Not Recovered/Not Resolved]

NARRATIVE: CASE EVENT DATE: 20240801
